FAERS Safety Report 18774009 (Version 1)
Quarter: 2021Q1

REPORT INFORMATION
  Report Type: Spontaneous
  Country: US (occurrence: US)
  Receive Date: 20210122
  Receipt Date: 20210122
  Transmission Date: 20210419
  Serious: No
  Sender: FDA-Public Use
  Company Number: None

PATIENT
  Age: 69 Year
  Sex: Female
  Weight: 85 kg

DRUGS (1)
  1. COVID CONVALESCENT PLASMA [Suspect]
     Active Substance: COVID-19 CONVALESCENT PLASMA
     Indication: COVID-19 TREATMENT

REACTIONS (2)
  - Wrong patient received product [None]
  - Drug monitoring procedure not performed [None]

NARRATIVE: CASE EVENT DATE: 20210102
